FAERS Safety Report 16464023 (Version 1)
Quarter: 2019Q2

REPORT INFORMATION
  Report Type: Spontaneous
  Country: JP (occurrence: JP)
  Receive Date: 20190621
  Receipt Date: 20190621
  Transmission Date: 20190711
  Serious: Yes (Hospitalization, Other)
  Sender: FDA-Public Use
  Company Number: JP-PFIZER INC-2019201582

PATIENT
  Age: 92 Year
  Sex: Female

DRUGS (3)
  1. AROMASIN [Suspect]
     Active Substance: EXEMESTANE
     Indication: BREAST CANCER FEMALE
     Dosage: 25 MG, DAILY
     Route: 048
     Dates: start: 201805, end: 2019
  2. WARFARIN [Concomitant]
     Active Substance: WARFARIN
     Dosage: 0.5 MG, DAILY
     Route: 048
  3. WARFARIN [Concomitant]
     Active Substance: WARFARIN
     Indication: ARRHYTHMIA
     Dosage: 0.5 MG, DAILY
     Route: 048
     Dates: end: 2019

REACTIONS (4)
  - Condition aggravated [Unknown]
  - Hypophagia [Recovering/Resolving]
  - Dysgeusia [Unknown]
  - Femur fracture [Unknown]

NARRATIVE: CASE EVENT DATE: 2019
